FAERS Safety Report 10863072 (Version 1)
Quarter: 2015Q1

REPORT INFORMATION
  Report Type: Spontaneous
  Country: TW (occurrence: None)
  Receive Date: 20150219
  Receipt Date: 20150219
  Transmission Date: 20150721
  Serious: Yes (Hospitalization)
  Sender: FDA-Public Use
  Company Number: TW-ZYDUS-006586

PATIENT
  Age: 28 Year
  Sex: Female

DRUGS (4)
  1. QUETIAPINE [Suspect]
     Active Substance: QUETIAPINE
     Indication: PSYCHOTIC DISORDER
  2. ZIPRASIDONE [Suspect]
     Active Substance: ZIPRASIDONE
     Indication: PSYCHOTIC DISORDER
  3. OLANZAPINE (OLANZAPINE) [Suspect]
     Active Substance: OLANZAPINE
  4. RISPERIDONE (RISPERIDONE) [Suspect]
     Active Substance: RISPERIDONE
     Indication: PSYCHOTIC DISORDER

REACTIONS (12)
  - Noninfective gingivitis [None]
  - Dry mouth [None]
  - Compulsions [None]
  - Drug resistance [None]
  - Aggression [None]
  - Dental caries [None]
  - Tooth disorder [None]
  - Anxiety [None]
  - Irritability [None]
  - Increased appetite [None]
  - Oral discomfort [None]
  - Tooth loss [None]
